FAERS Safety Report 5838144-X (Version None)
Quarter: 2008Q3

REPORT INFORMATION
  Report Type: 
  Country: None (occurrence: None)
  Receive Date: 20080808
  Receipt Date: 20080728
  Transmission Date: 20090109
  Serious: Yes (Hospitalization)
  Sender: FDA-Public Use
  Company Number: US-JNJFOC-20080407030

PATIENT
  Sex: Female
  Weight: 95.26 kg

DRUGS (7)
  1. REMICADE [Suspect]
     Route: 042
  2. REMICADE [Suspect]
     Indication: RHEUMATOID ARTHRITIS
     Route: 042
  3. PLAQUENIL [Concomitant]
     Indication: RHEUMATOID ARTHRITIS
  4. NORVASC [Concomitant]
     Indication: HYPERTENSION
  5. TOPROL-XL [Concomitant]
     Indication: HYPERTENSION
  6. METFORMIN HCL [Concomitant]
     Indication: DIABETES MELLITUS
  7. RELAFIN [Concomitant]
     Indication: RHEUMATOID ARTHRITIS

REACTIONS (4)
  - BACK PAIN [None]
  - CHILLS [None]
  - MYALGIA [None]
  - PAIN IN EXTREMITY [None]
